FAERS Safety Report 19954064 (Version 1)
Quarter: 2021Q4

REPORT INFORMATION
  Report Type: Spontaneous
  Country: IT (occurrence: IT)
  Receive Date: 20211014
  Receipt Date: 20211014
  Transmission Date: 20220303
  Serious: Yes (Other)
  Sender: FDA-Public Use
  Company Number: None

PATIENT
  Age: 79 Year
  Sex: Male
  Weight: 93 kg

DRUGS (9)
  1. ALLOPURINOL [Suspect]
     Active Substance: ALLOPURINOL
     Indication: Hyperuricaemia
     Dosage: 100 MG
     Route: 048
     Dates: start: 20210517, end: 20210905
  2. ATORVASTATIN [Concomitant]
     Active Substance: ATORVASTATIN
     Indication: Hypercholesterolaemia
     Dosage: 10 MG
     Route: 048
     Dates: start: 20140620
  3. RIOPAN [Concomitant]
     Indication: Gastritis
     Dosage: 80 MG
     Route: 048
     Dates: start: 20110101
  4. LANSOPRAZOLE [Concomitant]
     Active Substance: LANSOPRAZOLE
     Indication: Gastritis
     Dosage: 30 MG
     Route: 048
     Dates: start: 20160531
  5. NALTREXONE HYDROCHLORIDE [Concomitant]
     Active Substance: NALTREXONE HYDROCHLORIDE
     Indication: Hypertensive heart disease
     Dosage: 5 MG
     Route: 048
     Dates: start: 20150608
  6. ASPIRIN [Concomitant]
     Active Substance: ASPIRIN
     Indication: Carotid artery stenosis
     Dosage: 100 MG
     Route: 048
     Dates: start: 20090508
  7. FINASTERIDE [Concomitant]
     Active Substance: FINASTERIDE
     Indication: Benign prostatic hyperplasia
     Dosage: 5 MG
     Route: 048
     Dates: start: 20141126
  8. OLMESARTAN MEDOXOMIL [Concomitant]
     Active Substance: OLMESARTAN MEDOXOMIL
     Indication: Hypertension
     Dosage: 20 MG
     Route: 048
     Dates: start: 20180710
  9. FUROSEMIDE [Concomitant]
     Active Substance: FUROSEMIDE
     Indication: Hypertensive heart disease
     Dosage: 25 MG
     Route: 048
     Dates: start: 20201207

REACTIONS (1)
  - Erythema multiforme [Recovered/Resolved]

NARRATIVE: CASE EVENT DATE: 20210901
